FAERS Safety Report 8806926 (Version 1)
Quarter: 2012Q4

REPORT INFORMATION
  Report Type: 
  Country: US (occurrence: US)
  Receive Date: 20120925
  Receipt Date: 20120925
  Transmission Date: 20130627
  Serious: Yes (Other)
  Sender: FDA-Public Use
  Company Number: US-BRISTOL-MYERS SQUIBB COMPANY-16960924

PATIENT
  Age: 92 Year
  Sex: Female
  Weight: 59 kg

DRUGS (1)
  1. ABILIFY [Suspect]
     Dosage: taken in milder form,higher dose

REACTIONS (1)
  - Loss of consciousness [Unknown]
